FAERS Safety Report 19193361 (Version 1)
Quarter: 2021Q2

REPORT INFORMATION
  Report Type: Spontaneous
  Country: US (occurrence: US)
  Receive Date: 20210429
  Receipt Date: 20210429
  Transmission Date: 20210717
  Serious: Yes (Hospitalization, Other)
  Sender: FDA-Public Use
  Company Number: US-APOTEX-2021AP010369

PATIENT
  Age: 52 Year
  Sex: Male

DRUGS (1)
  1. METFORMIN [Suspect]
     Active Substance: METFORMIN HYDROCHLORIDE
     Indication: PRODUCT USED FOR UNKNOWN INDICATION
     Dosage: UNK (60 PILLS OF HIS 1000 MG METFORMIN)
     Route: 065

REACTIONS (9)
  - Hypoglycaemia [Recovering/Resolving]
  - Intentional overdose [Recovering/Resolving]
  - Drug level increased [Recovering/Resolving]
  - Metabolic acidosis [Recovering/Resolving]
  - Hypotension [Recovering/Resolving]
  - Mental status changes [Recovered/Resolved]
  - Tachypnoea [Recovering/Resolving]
  - Hyperlactacidaemia [Recovered/Resolved]
  - Depressed level of consciousness [Recovering/Resolving]
